FAERS Safety Report 4509830-9 (Version None)
Quarter: 2004Q4

REPORT INFORMATION
  Report Type: 
  Country: None (occurrence: None)
  Receive Date: 20041119
  Receipt Date: 20041108
  Transmission Date: 20050328
  Serious: Yes (Hospitalization)
  Sender: FDA-Public Use
  Company Number: SP00352

PATIENT
  Age: 59 Year
  Sex: Male
  Weight: 130 kg

DRUGS (9)
  1. XIFAXAN [Suspect]
     Indication: HEPATIC ENCEPHALOPATHY
     Dosage: 400MG Q8H, ORAL
     Route: 048
     Dates: start: 20040901
  2. LACTULOSE [Concomitant]
  3. AMILORIDE [Concomitant]
  4. ATENOLOL [Concomitant]
  5. LASIX [Concomitant]
  6. PRILOSEC [Concomitant]
  7. SYNTHROID [Concomitant]
  8. CIPRO [Concomitant]
  9. FLAGYL [Concomitant]

REACTIONS (4)
  - CONDITION AGGRAVATED [None]
  - HEPATIC ENCEPHALOPATHY [None]
  - PANCYTOPENIA [None]
  - SKIN DISORDER [None]
